FAERS Safety Report 7138712-1 (Version None)
Quarter: 2010Q4

REPORT INFORMATION
  Report Type: 
  Country: None (occurrence: None)
  Receive Date: 20101201
  Receipt Date: 20101201
  Transmission Date: 20110411
  Serious: Yes (Hospitalization)
  Sender: FDA-Public Use
  Company Number: None

PATIENT
  Sex: Female
  Weight: 66.6788 kg

DRUGS (2)
  1. LENALIDOMIDE [Suspect]
     Indication: ACUTE MYELOID LEUKAEMIA
     Dosage: 50MG QD D1-28 PO
     Route: 048
     Dates: start: 20101030, end: 20101126
  2. AZACITIDINE [Suspect]
     Indication: ACUTE MYELOID LEUKAEMIA
     Dosage: 25MG/M2 D1-5 IV
     Route: 042
     Dates: start: 20101030, end: 20101126

REACTIONS (2)
  - ABDOMINAL PAIN LOWER [None]
  - FEBRILE NEUTROPENIA [None]
